FAERS Safety Report 9499963 (Version 1)
Quarter: 2013Q3

REPORT INFORMATION
  Report Type: Spontaneous
  Country: US (occurrence: US)
  Receive Date: 20130905
  Receipt Date: 20130905
  Transmission Date: 20140515
  Serious: No
  Sender: FDA-Public Use
  Company Number: US-PFIZER INC-2013254406

PATIENT
  Sex: Male

DRUGS (3)
  1. CELEBREX [Suspect]
     Dosage: UNK
     Route: 048
  2. CELEBREX [Suspect]
     Dosage: 200 MG, 2X/DAY
     Route: 048
     Dates: start: 201306, end: 20130903
  3. LASIX [Concomitant]
     Dosage: UNK

REACTIONS (7)
  - Oedema peripheral [Unknown]
  - Pruritus [Unknown]
  - Rash [Unknown]
  - Urine output increased [Unknown]
  - Abdominal pain upper [Unknown]
  - Constipation [Unknown]
  - Weight increased [Unknown]
